FAERS Safety Report 11206084 (Version 1)
Quarter: 2015Q2

REPORT INFORMATION
  Report Type: Spontaneous
  Country: US (occurrence: US)
  Receive Date: 20150622
  Receipt Date: 20150622
  Transmission Date: 20150821
  Serious: Yes (Hospitalization)
  Sender: FDA-Public Use
  Company Number: US-MPIJNJ-2011-01072

PATIENT
  Age: 65 Year
  Sex: Male
  Weight: 93.42 kg

DRUGS (2)
  1. CYTOXAN [Suspect]
     Active Substance: CYCLOPHOSPHAMIDE
     Indication: PLASMA CELL MYELOMA
     Dosage: 675 MG, CYCLIC, DAYS 1,8
     Route: 042
     Dates: start: 20100928, end: 20110114
  2. VELCADE [Suspect]
     Active Substance: BORTEZOMIB
     Indication: PLASMA CELL MYELOMA
     Dosage: 2.9 MG, CYCLIC, DAYS 1,4,8,11
     Route: 042
     Dates: start: 20100907, end: 20110114

REACTIONS (3)
  - Autonomic neuropathy [Recovered/Resolved]
  - Dehydration [Recovered/Resolved]
  - Diarrhoea [Recovered/Resolved]

NARRATIVE: CASE EVENT DATE: 20101215
